FAERS Safety Report 13251814 (Version 3)
Quarter: 2017Q2

REPORT INFORMATION
  Report Type: Spontaneous
  Country: US (occurrence: US)
  Receive Date: 20170220
  Receipt Date: 20170428
  Transmission Date: 20170830
  Serious: Yes (Death, Hospitalization)
  Sender: FDA-Public Use
  Company Number: US-PFIZER INC-2017072110

PATIENT
  Age: 68 Year
  Sex: Female
  Weight: 62.14 kg

DRUGS (1)
  1. SUTENT [Suspect]
     Active Substance: SUNITINIB MALATE
     Indication: RENAL CANCER
     Dosage: 37.5 MG, 1X/DAY (ON 2 WEEKS AND OFF TWO WEEKS)

REACTIONS (2)
  - Renal pain [Unknown]
  - Aortic aneurysm [Fatal]
